FAERS Safety Report 20657805 (Version 1)
Quarter: 2022Q1

REPORT INFORMATION
  Report Type: Spontaneous
  Country: US (occurrence: None)
  Receive Date: 20220330
  Receipt Date: 20220330
  Transmission Date: 20220423
  Serious: No
  Sender: FDA-Public Use
  Company Number: None

PATIENT
  Age: 73 Year
  Sex: Male
  Weight: 90.72 kg

DRUGS (14)
  1. ABIRATERONE [Suspect]
     Active Substance: ABIRATERONE
     Dosage: 1000MG ONCE DAILY ORAL?
     Route: 048
  2. PREDNISONE [Suspect]
     Active Substance: PREDNISONE
  3. ABIRATERONE [Concomitant]
     Active Substance: ABIRATERONE
  4. ATENOLOL [Concomitant]
     Active Substance: ATENOLOL
  5. ATORVASTATIN [Concomitant]
     Active Substance: ATORVASTATIN
  6. CALCIUM [Concomitant]
     Active Substance: CALCIUM
  7. DULOXETINE [Concomitant]
     Active Substance: DULOXETINE
  8. FISH OIL [Concomitant]
     Active Substance: FISH OIL
  9. GABAPENTIN [Concomitant]
     Active Substance: GABAPENTIN
  10. NORCO [Concomitant]
     Active Substance: ACETAMINOPHEN\HYDROCODONE BITARTRATE
  11. ASPIRIN [Concomitant]
     Active Substance: ASPIRIN
  12. LANTUS [Concomitant]
     Active Substance: INSULIN GLARGINE
  13. METFORMIN [Concomitant]
     Active Substance: METFORMIN HYDROCHLORIDE
  14. VITAMIN D3 [Concomitant]
     Active Substance: CHOLECALCIFEROL

REACTIONS (1)
  - Prostatic specific antigen increased [None]
